FAERS Safety Report 5508640-3 (Version None)
Quarter: 2007Q4

REPORT INFORMATION
  Report Type: 
  Country: None (occurrence: None)
  Receive Date: 20071107
  Receipt Date: 20071106
  Transmission Date: 20080405
  Serious: Yes (Other)
  Sender: FDA-Public Use
  Company Number: US-BAYER-200713384BWH

PATIENT
  Age: 51 Year
  Sex: Female

DRUGS (1)
  1. AVELOX [Suspect]
     Indication: DRUG USE FOR UNKNOWN INDICATION
     Dosage: TOTAL DAILY DOSE: 400 MG  UNIT DOSE: 400 MG
     Route: 048

REACTIONS (4)
  - CONVULSION [None]
  - ELECTROCARDIOGRAM QT PROLONGED [None]
  - PARALYSIS [None]
  - VENTRICULAR TACHYCARDIA [None]
